FAERS Safety Report 8785991 (Version 2)
Quarter: 2012Q4

REPORT INFORMATION
  Report Type: 
  Country: US (occurrence: US)
  Receive Date: 20120914
  Receipt Date: 20121113
  Transmission Date: 20130627
  Serious: Yes (Hospitalization)
  Sender: FDA-Public Use
  Company Number: PHEH2012US017765

PATIENT
  Age: 64 Year
  Sex: Female

DRUGS (13)
  1. RECLAST [Suspect]
     Indication: OSTEOPOROSIS
     Dosage: UNK UKN, yearly
     Route: 042
     Dates: start: 20120814
  2. DIOVAN [Concomitant]
     Indication: BLOOD PRESSURE ABNORMAL
     Dosage: 80 mg, QD
     Route: 048
  3. LANTUS [Concomitant]
     Indication: DIABETES MELLITUS
     Dosage: 20 IU, QD
  4. ATENOLOL [Concomitant]
     Indication: CARDIAC DISORDER
     Dosage: 25 mg, QD
     Route: 048
  5. ISOSORBIDE [Concomitant]
     Indication: CARDIAC DISORDER
     Dosage: UNK UKN, QD
     Route: 048
  6. TORSEMIDE [Concomitant]
     Dosage: 20 mg, BID
     Route: 048
  7. ZONISAMIDE [Concomitant]
     Indication: MIGRAINE
     Dosage: 100 mg, six per day
     Route: 048
  8. PRILOSEC [Concomitant]
     Indication: GASTROOESOPHAGEAL REFLUX DISEASE
     Dosage: 20 mg, BID
     Route: 048
  9. MIRAPEX [Concomitant]
     Indication: RESTLESS LEGS SYNDROME
     Dosage: 1.5 mg, BID
     Route: 048
  10. POTASSIUM CHLORIDE [Concomitant]
     Dosage: 10 MEq, BID
     Route: 048
  11. ORPHENADRINE [Concomitant]
     Indication: MUSCLE RELAXANT THERAPY
     Dosage: 100 mg, BID
     Route: 048
  12. RANESA [Concomitant]
     Indication: ANGINA PECTORIS
     Dosage: UNK UKN, BID
     Route: 048
  13. CRESTOR [Concomitant]
     Dosage: UNK UKN, UNK
     Route: 048

REACTIONS (3)
  - Dysphagia [Recovered/Resolved]
  - Tongue disorder [Recovered/Resolved]
  - Hypoaesthesia oral [Recovered/Resolved]
